FAERS Safety Report 6220275-6 (Version None)
Quarter: 2009Q2

REPORT INFORMATION
  Report Type: 
  Country: None (occurrence: None)
  Receive Date: 20090605
  Receipt Date: 20090525
  Transmission Date: 20091009
  Serious: Yes (Hospitalization)
  Sender: FDA-Public Use
  Company Number: 230301K09BRA

PATIENT
  Age: 49 Year
  Sex: Male

DRUGS (1)
  1. REBIF [Suspect]
     Indication: SECONDARY PROGRESSIVE MULTIPLE SCLEROSIS
     Dosage: 44 MCG, 3 IN 1 WEEKS
     Dates: start: 20040413

REACTIONS (8)
  - ABASIA [None]
  - DIARRHOEA [None]
  - DIPLOPIA [None]
  - FACIAL PALSY [None]
  - MUSCULAR WEAKNESS [None]
  - PYREXIA [None]
  - SPEECH DISORDER [None]
  - VISION BLURRED [None]
